FAERS Safety Report 15995443 (Version 1)
Quarter: 2019Q1

REPORT INFORMATION
  Report Type: Spontaneous
  Country: US (occurrence: US)
  Receive Date: 20190222
  Receipt Date: 20190222
  Transmission Date: 20190418
  Serious: Yes (Hospitalization, Other)
  Sender: FDA-Public Use
  Company Number: US-HIKMA PHARMACEUTICALS USA INC.-US-H14001-19-01097

PATIENT
  Age: 49 Year
  Sex: Male

DRUGS (1)
  1. DEXAMETHASONE. [Suspect]
     Active Substance: DEXAMETHASONE
     Indication: PRODUCT USED FOR UNKNOWN INDICATION
     Dosage: RIGHT L5/S1 TFESI PERFORMED UNDER FLUOROSCOPIC GUIDANCE ()
     Route: 008

REACTIONS (6)
  - Incorrect route of product administration [Recovered/Resolved]
  - Micturition urgency [Recovered/Resolved]
  - Ischaemia [Recovered/Resolved]
  - Nerve root injury lumbar [Recovered/Resolved]
  - Product use issue [Recovered/Resolved]
  - Peroneal nerve palsy [Recovered/Resolved]
